FAERS Safety Report 9596777 (Version 2)
Quarter: 2013Q4

REPORT INFORMATION
  Report Type: Spontaneous
  Country: US (occurrence: US)
  Receive Date: 20131004
  Receipt Date: 20131004
  Transmission Date: 20140711
  Serious: Yes (Other)
  Sender: FDA-Public Use
  Company Number: US-TAKEDA-2013TUS001030

PATIENT
  Sex: 0

DRUGS (1)
  1. PREVACID [Suspect]
     Indication: OFF LABEL USE
     Dosage: 15 MG, QD
     Route: 065

REACTIONS (5)
  - Chondropathy [Recovering/Resolving]
  - Weight loss poor [Not Recovered/Not Resolved]
  - Gastric pH increased [Not Recovered/Not Resolved]
  - Feeling abnormal [Recovered/Resolved]
  - Abdominal distension [Recovered/Resolved]
